FAERS Safety Report 8815851 (Version 3)
Quarter: 2013Q1

REPORT INFORMATION
  Report Type: Spontaneous
  Country: US (occurrence: US)
  Receive Date: 20120928
  Receipt Date: 20130117
  Transmission Date: 20140127
  Serious: Yes (Other)
  Sender: FDA-Public Use
  Company Number: US-ASTRAZENECA-2012SE73243

PATIENT
  Age: 57 Year
  Sex: Female

DRUGS (5)
  1. ARIMIDEX [Suspect]
     Route: 048
  2. PRILOSEC [Suspect]
     Indication: GASTROOESOPHAGEAL REFLUX DISEASE
     Route: 048
     Dates: start: 1995
  3. PRILOSEC [Suspect]
     Indication: GASTROOESOPHAGEAL REFLUX DISEASE
     Dosage: GENERIC
     Route: 048
  4. PRILOSEC [Suspect]
     Indication: GASTROOESOPHAGEAL REFLUX DISEASE
     Dosage: MULTIPLE MANUFACTURERS
     Route: 048
  5. PRILOSEC OTC [Suspect]
     Indication: GASTROOESOPHAGEAL REFLUX DISEASE
     Route: 048

REACTIONS (10)
  - Breast cancer female [Unknown]
  - Accident [Unknown]
  - Spinal cord compression [Unknown]
  - Malignant melanoma [Unknown]
  - Adverse event [Unknown]
  - Malaise [Unknown]
  - Vomiting [Unknown]
  - Intentional drug misuse [Unknown]
  - Gastrooesophageal reflux disease [Unknown]
  - Abdominal pain upper [Unknown]
